FAERS Safety Report 7490230-7 (Version None)
Quarter: 2011Q2

REPORT INFORMATION
  Report Type: 
  Country: None (occurrence: None)
  Receive Date: 20110519
  Receipt Date: 20110503
  Transmission Date: 20111010
  Serious: No
  Sender: FDA-Public Use
  Company Number: US-TYCO HEALTHCARE/MALLINCKRODT-T201100891

PATIENT
  Sex: Female
  Weight: 74.83 kg

DRUGS (3)
  1. FENTANYL-100 [Suspect]
     Dosage: 50 UG/HR Q 72 HR
     Dates: start: 20110502
  2. FENTANYL [Concomitant]
     Indication: ARTHRITIS
     Dosage: UNK
     Route: 062
     Dates: start: 20110401, end: 20110501
  3. FENTANYL-100 [Suspect]
     Indication: ARTHRITIS
     Dosage: 50 UG/HR Q72 HR
     Route: 062
     Dates: start: 20110416, end: 20110401

REACTIONS (6)
  - HYPERHIDROSIS [None]
  - HEADACHE [None]
  - MYDRIASIS [None]
  - DRUG EFFECT INCREASED [None]
  - EUPHORIC MOOD [None]
  - NAUSEA [None]
